FAERS Safety Report 13869543 (Version 1)
Quarter: 2017Q3

REPORT INFORMATION
  Report Type: Spontaneous
  Country: US (occurrence: US)
  Receive Date: 20170815
  Receipt Date: 20170815
  Transmission Date: 20171127
  Serious: Yes (Other)
  Sender: FDA-Public Use
  Company Number: US-HERITAGE PHARMACEUTICALS-2017HTG00212

PATIENT
  Age: 79 Year
  Sex: Female

DRUGS (9)
  1. GABAPENTIN. [Concomitant]
     Active Substance: GABAPENTIN
  2. FLECAINIDE [Concomitant]
     Active Substance: FLECAINIDE
  3. ALBUTEROL. [Concomitant]
     Active Substance: ALBUTEROL
  4. PRAVASTATIN. [Concomitant]
     Active Substance: PRAVASTATIN
  5. ASA [Concomitant]
     Active Substance: ASPIRIN
  6. METHIMAZOLE. [Suspect]
     Active Substance: METHIMAZOLE
     Dosage: UNK
  7. COQ10 [Concomitant]
     Active Substance: UBIDECARENONE
  8. FOLIC ACID. [Concomitant]
     Active Substance: FOLIC ACID
  9. ADVAIR HFA [Concomitant]
     Active Substance: FLUTICASONE PROPIONATE\SALMETEROL XINAFOATE

REACTIONS (7)
  - Fatigue [Not Recovered/Not Resolved]
  - Cardiac disorder [Not Recovered/Not Resolved]
  - Asthenia [Not Recovered/Not Resolved]
  - Dyspnoea [Not Recovered/Not Resolved]
  - Cough [Not Recovered/Not Resolved]
  - Alopecia [Not Recovered/Not Resolved]
  - Wheezing [Not Recovered/Not Resolved]

NARRATIVE: CASE EVENT DATE: 201707
